FAERS Safety Report 9139016 (Version 1)
Quarter: 2013Q1

REPORT INFORMATION
  Report Type: Report from Study
  Country: US (occurrence: US)
  Receive Date: 20130305
  Receipt Date: 20130305
  Transmission Date: 20140127
  Serious: Yes (Other)
  Sender: FDA-Public Use
  Company Number: US-BAYER-2013-011155

PATIENT
  Age: 61 Year
  Sex: Female

DRUGS (1)
  1. SORAFENIB (RAF KINASE INHIBITOR) [Suspect]
     Indication: RENAL CANCER
     Dosage: 400 MG, BID
     Route: 048
     Dates: start: 20130114

REACTIONS (9)
  - Mobility decreased [None]
  - Back pain [None]
  - Nausea [None]
  - Drug intolerance [None]
  - Heart rate increased [None]
  - Hypotension [None]
  - Mouth ulceration [None]
  - Blister [None]
  - Skin exfoliation [None]
